FAERS Safety Report 4582178-2 (Version None)
Quarter: 2005Q1

REPORT INFORMATION
  Report Type: 
  Country: None (occurrence: None)
  Receive Date: 20050210
  Receipt Date: 20050126
  Transmission Date: 20050727
  Serious: Yes (Death)
  Sender: FDA-Public Use
  Company Number: 2004AL000837

PATIENT
  Age: 15 Year
  Sex: Male

DRUGS (9)
  1. FLUVOXAMINE MALEATE [Suspect]
     Dosage: PO
     Route: 048
  2. HYDRAMINE [Suspect]
     Dosage: PO
     Route: 048
  3. HYDRAMINE [Suspect]
     Dosage: PO
     Route: 048
  4. ACETAMINOPHEN [Suspect]
     Dosage: PO
     Route: 048
  5. ACETAMINOPHEN [Suspect]
     Dosage: PO
     Route: 048
  6. IBUPROFEN [Suspect]
     Dosage: PO
     Route: 048
  7. IBUPROFEN [Suspect]
     Dosage: PO
     Route: 048
  8. QUETIAPINE FUMARATE [Suspect]
     Dosage: PO
     Route: 048
  9. BROMPHENIRAMINE [Suspect]
     Dosage: PO
     Route: 048

REACTIONS (15)
  - AGONAL RHYTHM [None]
  - BLOOD PH DECREASED [None]
  - CARDIO-RESPIRATORY ARREST [None]
  - COMA [None]
  - COMPLETED SUICIDE [None]
  - ELECTROCARDIOGRAM QRS COMPLEX PROLONGED [None]
  - ELECTROCARDIOGRAM ST SEGMENT DEPRESSION [None]
  - GRAND MAL CONVULSION [None]
  - HAEMOGLOBIN ABNORMAL [None]
  - HYPOTENSION [None]
  - INTENTIONAL MISUSE [None]
  - PCO2 INCREASED [None]
  - PO2 INCREASED [None]
  - PULSE ABSENT [None]
  - VENTRICULAR TACHYCARDIA [None]
